FAERS Safety Report 5001272-5 (Version None)
Quarter: 2006Q1

REPORT INFORMATION
  Report Type: 
  Country: None (occurrence: None)
  Receive Date: 20060315
  Receipt Date: 20051129
  Transmission Date: 20060701
  Serious: Yes (Other)
  Sender: FDA-Public Use
  Company Number: 425028

PATIENT
  Age: 69 Year
  Sex: Female
  Weight: 54.9 kg

DRUGS (1)
  1. BONIVA [Suspect]
     Indication: OSTEOPOROSIS
     Dosage: ORAL
     Route: 048
     Dates: start: 20051028, end: 20051110

REACTIONS (2)
  - ARTHRALGIA [None]
  - JOINT SWELLING [None]
